FAERS Safety Report 10975778 (Version 3)
Quarter: 2015Q3

REPORT INFORMATION
  Report Type: Spontaneous
  Country: US (occurrence: US)
  Receive Date: 20150401
  Receipt Date: 20150710
  Transmission Date: 20151125
  Serious: Yes (Hospitalization)
  Sender: FDA-Public Use
  Company Number: US-UNITED THERAPEUTICS-UNT-2015-003018

PATIENT
  Sex: Female

DRUGS (3)
  1. REMODULIN [Suspect]
     Active Substance: TREPROSTINIL
     Indication: PULMONARY ARTERIAL HYPERTENSION
     Dosage: 0.250 ?G/KG/MIN, CONTINUING
     Route: 041
     Dates: start: 20120123
  2. REMODULIN [Suspect]
     Active Substance: TREPROSTINIL
     Dosage: 0.262 ?G/KG, Q48H
     Route: 041
     Dates: start: 20120702
  3. REMODULIN [Suspect]
     Active Substance: TREPROSTINIL
     Indication: PULMONARY HYPERTENSION
     Dosage: 0.244 ?G/KG/MIN, CONTINUING
     Route: 041

REACTIONS (8)
  - Dehydration [Unknown]
  - Flushing [Unknown]
  - Hypotension [Unknown]
  - Vomiting [Unknown]
  - Dizziness [Unknown]
  - Gastritis [Unknown]
  - Duodenitis [Unknown]
  - Nausea [Unknown]

NARRATIVE: CASE EVENT DATE: 20150305
